FAERS Safety Report 19501388 (Version 2)
Quarter: 2021Q3

REPORT INFORMATION
  Report Type: Spontaneous
  Country: KR (occurrence: KR)
  Receive Date: 20210707
  Receipt Date: 20210709
  Transmission Date: 20211014
  Serious: Yes (Other)
  Sender: FDA-Public Use
  Company Number: KR-JNJFOC-20210664592

PATIENT
  Age: 19 Year
  Sex: Male
  Weight: 48 kg

DRUGS (5)
  1. INFLIXIMAB, RECOMBINANT [Suspect]
     Active Substance: INFLIXIMAB
     Indication: CROHN^S DISEASE
     Dosage: (0?2?6 WEEK) AND MAINTENANCE(8 WEEK)
     Route: 042
     Dates: start: 20170525
  2. INFLIXIMAB, RECOMBINANT [Suspect]
     Active Substance: INFLIXIMAB
     Dosage: DOUBLE DOSE
     Route: 042
     Dates: start: 20191205, end: 2019
  3. AZATHIOPRINE. [Suspect]
     Active Substance: AZATHIOPRINE
     Indication: CROHN^S DISEASE
     Route: 065
     Dates: start: 20170525
  4. 5?ASA [Suspect]
     Active Substance: MESALAMINE
     Indication: CROHN^S DISEASE
     Dosage: 5?ASA 2G
     Route: 065
     Dates: start: 20170525
  5. AZATHIOPRINE. [Suspect]
     Active Substance: AZATHIOPRINE
     Route: 065
     Dates: start: 20191205

REACTIONS (7)
  - Shock [Unknown]
  - Incorrect dose administered [Unknown]
  - Crohn^s disease [Unknown]
  - Drug level decreased [Unknown]
  - Infusion related reaction [Unknown]
  - Drug ineffective [Unknown]
  - Off label use [Unknown]

NARRATIVE: CASE EVENT DATE: 20191010
